FAERS Safety Report 22664033 (Version 2)
Quarter: 2023Q4

REPORT INFORMATION
  Report Type: Spontaneous
  Country: FR (occurrence: FR)
  Receive Date: 20230703
  Receipt Date: 20231026
  Transmission Date: 20240110
  Serious: Yes (Hospitalization, Other)
  Sender: FDA-Public Use
  Company Number: FR-GLAXOSMITHKLINE-FR2017GSK145806

PATIENT
  Age: 78 Year
  Sex: Female
  Weight: 68 kg

DRUGS (14)
  1. OXALIPLATIN [Suspect]
     Active Substance: OXALIPLATIN
     Indication: Rectal cancer
     Dosage: 50 MILLIGRAM, (50 MG, CYC)
     Route: 042
     Dates: start: 2006
  2. BUMETANIDE [Suspect]
     Active Substance: BUMETANIDE
     Indication: Hypertension
     Dosage: 5 MILLIGRAM, ONCE A DAY, (5 MG, 1D)
     Route: 048
     Dates: start: 201708
  3. BOTOX [Suspect]
     Active Substance: ONABOTULINUMTOXINA
     Indication: Anal incontinence
     Dosage: 500 DOSAGE FORM, SINGLE
     Route: 042
  4. BOTOX [Suspect]
     Active Substance: ONABOTULINUMTOXINA
     Dosage: 500 DOSAGE FORM, (500 DF, Z)
     Route: 030
     Dates: start: 201201
  5. PREDNISONE [Suspect]
     Active Substance: PREDNISONE
     Indication: Chronic obstructive pulmonary disease
     Dosage: 12 MILLIGRAM, ONCE A DAY, (12 MG, QD (DAILY DOSE: 12.0 MG))
     Route: 048
     Dates: start: 201708
  6. THEOPHYLLINE [Suspect]
     Active Substance: THEOPHYLLINE
     Indication: Chronic obstructive pulmonary disease
     Dosage: 300 MILLIGRAM, (300 MG (DAILY DOSE: 600.0 MG))
     Route: 048
  7. THEOPHYLLINE [Suspect]
     Active Substance: THEOPHYLLINE
     Dosage: 2 DOSAGE FORM, (2 DF (300MG))
     Route: 048
     Dates: start: 2015
  8. POTASSIUM CHLORIDE [Suspect]
     Active Substance: POTASSIUM CHLORIDE
     Indication: Hypokalaemia
     Dosage: 2 MILLIGRAM, 2 MG
     Route: 048
     Dates: start: 201708
  9. PULMICORT TURBUHALER [Suspect]
     Active Substance: BUDESONIDE
     Indication: Chronic obstructive pulmonary disease
     Dosage: 200 MICROGRAM, (200 UG, BID (400.0 ?G))
     Route: 065
     Dates: start: 2015
  10. SINGULAIR [Suspect]
     Active Substance: MONTELUKAST SODIUM
     Indication: Asthma
     Dosage: 100 MILLIGRAM, ONCE A DAY, (100 MG, 1D)
     Route: 048
     Dates: start: 2015
  11. FLUCONAZOLE [Suspect]
     Active Substance: FLUCONAZOLE
     Indication: Fungal infection
     Dosage: UNK, UNK (UNK (DESC DOSE: 50 MOUTHWASHES))
     Route: 065
     Dates: start: 201708
  12. GLYCOPYRRONIUM\INDACATEROL [Suspect]
     Active Substance: GLYCOPYRRONIUM\INDACATEROL
     Indication: Chronic obstructive pulmonary disease
     Dosage: 1 DOSAGE FORM, ONCE A DAY, (1 DF, 1D, 85 MCG/43 MCG)
     Route: 065
     Dates: start: 201708
  13. ALBUTEROL [Suspect]
     Active Substance: ALBUTEROL
     Indication: Asthma
     Dosage: 1 DOSAGE FORM, (1 DF, Z)
     Route: 065
     Dates: start: 201708
  14. XELODA [Suspect]
     Active Substance: CAPECITABINE
     Indication: Rectal cancer
     Dosage: 825 MILLIGRAM/SQ. METER, (825 MG/M2, CYC)
     Route: 048
     Dates: start: 2006, end: 2006

REACTIONS (6)
  - Arteriosclerosis coronary artery [Not Recovered/Not Resolved]
  - Ejection fraction decreased [Not Recovered/Not Resolved]
  - Dilated cardiomyopathy [Not Recovered/Not Resolved]
  - Overdose [Unknown]
  - Product use in unapproved indication [Unknown]
  - Product prescribing issue [Unknown]

NARRATIVE: CASE EVENT DATE: 20170801
